FAERS Safety Report 17225318 (Version 1)
Quarter: 2020Q1

REPORT INFORMATION
  Report Type: Spontaneous
  Country: NL (occurrence: DK)
  Receive Date: 20200102
  Receipt Date: 20200102
  Transmission Date: 20200409
  Serious: Yes (Other)
  Sender: FDA-Public Use
  Company Number: DK-FRESENIUS KABI-FK201914699

PATIENT
  Age: 70 Year
  Sex: Male

DRUGS (1)
  1. ZOLEDRONIC ACID (MANUFACTURER UNKNOWN) [Suspect]
     Active Substance: ZOLEDRONIC ACID
     Indication: PLASMA CELL MYELOMA
     Dosage: EVERY 3-4 WEEKS
     Route: 042
     Dates: start: 20181122, end: 20190417

REACTIONS (4)
  - Purulence [Not Recovered/Not Resolved]
  - Osteonecrosis of jaw [Recovering/Resolving]
  - Sequestrectomy [Unknown]
  - Oral cavity fistula [Not Recovered/Not Resolved]

NARRATIVE: CASE EVENT DATE: 201904
